FAERS Safety Report 8169066-X (Version None)
Quarter: 2012Q1

REPORT INFORMATION
  Report Type: 
  Country: None (occurrence: None)
  Receive Date: 20120227
  Receipt Date: 20120223
  Transmission Date: 20120608
  Serious: Yes (Hospitalization, Other)
  Sender: FDA-Public Use
  Company Number: US-GILEAD-2012-0050697

PATIENT
  Sex: Female

DRUGS (1)
  1. LETAIRIS [Suspect]
     Indication: PULMONARY HYPERTENSION
     Dosage: 5 MG, UNK
     Route: 048
     Dates: start: 20120130

REACTIONS (7)
  - DYSPNOEA [None]
  - RESPIRATORY FAILURE [None]
  - HYPERTENSION [None]
  - RENAL FAILURE [None]
  - OXYGEN SATURATION DECREASED [None]
  - HEPATIC FAILURE [None]
  - DIALYSIS [None]
